FAERS Safety Report 4973162-5 (Version None)
Quarter: 2006Q2

REPORT INFORMATION
  Report Type: 
  Country: None (occurrence: None)
  Receive Date: 20060414
  Receipt Date: 20051004
  Transmission Date: 20061013
  Serious: Yes (Hospitalization)
  Sender: FDA-Public Use
  Company Number: US-MERCK-0510USA03498

PATIENT
  Age: 73 Year
  Sex: Female
  Weight: 109 kg

DRUGS (1)
  1. VIOXX [Suspect]
     Indication: ARTHRITIS
     Route: 048
     Dates: start: 20000901, end: 20040101

REACTIONS (30)
  - ANXIETY [None]
  - ARTERIOSCLEROSIS [None]
  - BACK DISORDER [None]
  - CARBUNCLE [None]
  - CARDIAC FAILURE CONGESTIVE [None]
  - CAROTID ARTERY DISEASE [None]
  - CELLULITIS [None]
  - CEREBRAL DISORDER [None]
  - CEREBROVASCULAR ACCIDENT [None]
  - CHOLELITHIASIS [None]
  - CONSTIPATION [None]
  - CORONARY ARTERY DISEASE [None]
  - DECUBITUS ULCER [None]
  - DEHYDRATION [None]
  - DIABETIC NEUROPATHY [None]
  - GASTROOESOPHAGEAL REFLUX DISEASE [None]
  - HYPERPARATHYROIDISM [None]
  - HYPOMAGNESAEMIA [None]
  - HYPONATRAEMIA [None]
  - IMPAIRED GASTRIC EMPTYING [None]
  - NEUROPATHY PERIPHERAL [None]
  - ORAL CANDIDIASIS [None]
  - OSTEOPOROSIS [None]
  - PNEUMONIA KLEBSIELLA [None]
  - REFLUX OESOPHAGITIS [None]
  - RENAL FAILURE [None]
  - SINUSITIS [None]
  - SPINAL COLUMN STENOSIS [None]
  - TRANSIENT ISCHAEMIC ATTACK [None]
  - URINARY TRACT INFECTION [None]
